FAERS Safety Report 10250355 (Version 1)
Quarter: 2014Q2

REPORT INFORMATION
  Report Type: Spontaneous
  Country: US (occurrence: None)
  Receive Date: 20140618
  Receipt Date: 20140618
  Transmission Date: 20141212
  Serious: No
  Sender: FDA-Public Use
  Company Number: None

PATIENT
  Age: 49 Year
  Sex: Female
  Weight: 90.72 kg

DRUGS (1)
  1. INVOKANA [Suspect]
     Indication: DIABETES MELLITUS
     Dosage: 1 ONCE DAILY
     Route: 048
     Dates: start: 20131130, end: 20140531

REACTIONS (4)
  - Kidney infection [None]
  - Back pain [None]
  - Blood urine present [None]
  - Renal impairment [None]
